FAERS Safety Report 22772369 (Version 8)
Quarter: 2023Q4

REPORT INFORMATION
  Report Type: Report from Study
  Country: US (occurrence: US)
  Receive Date: 20230801
  Receipt Date: 20231225
  Transmission Date: 20240110
  Serious: No
  Sender: FDA-Public Use
  Company Number: US-002147023-NVSC2023US167131

PATIENT
  Sex: Female

DRUGS (1)
  1. KESIMPTA [Suspect]
     Active Substance: OFATUMUMAB
     Indication: Product used for unknown indication
     Dosage: UNK
     Route: 065

REACTIONS (10)
  - Hyperhidrosis [Unknown]
  - Abdominal pain upper [Unknown]
  - Feeling abnormal [Unknown]
  - Hair texture abnormal [Unknown]
  - Trichorrhexis [Unknown]
  - Alopecia [Unknown]
  - Headache [Unknown]
  - Chills [Unknown]
  - Nasopharyngitis [Unknown]
  - B-lymphocyte count decreased [Unknown]
